FAERS Safety Report 25610908 (Version 1)
Quarter: 2025Q3

REPORT INFORMATION
  Report Type: Spontaneous
  Country: US (occurrence: None)
  Receive Date: 20250725
  Receipt Date: 20250725
  Transmission Date: 20251021
  Serious: Yes (Hospitalization, Other)
  Sender: FDA-CTU
  Company Number: None

PATIENT
  Age: 65 Year
  Sex: Male
  Weight: 89.81 kg

DRUGS (1)
  1. AUSTEDO [Suspect]
     Active Substance: DEUTETRABENAZINE
     Indication: Dystonia
     Dosage: 1 TABLET  6 MG TWICE A DAY BY MOUTH
     Route: 048
     Dates: start: 20230727

REACTIONS (2)
  - Prostate cancer [None]
  - Abnormal behaviour [None]
